FAERS Safety Report 13141129 (Version 1)
Quarter: 2017Q1

REPORT INFORMATION
  Report Type: Spontaneous
  Country: US (occurrence: US)
  Receive Date: 20170123
  Receipt Date: 20170123
  Transmission Date: 20170428
  Serious: Yes (Life-Threatening, Other)
  Sender: FDA-Public Use
  Company Number: US-PFIZER INC-2017026500

PATIENT
  Age: 55 Year
  Sex: Female

DRUGS (1)
  1. EPIPEN [Suspect]
     Active Substance: EPINEPHRINE
     Indication: ANAPHYLACTIC REACTION
     Dosage: 0.3 MG, ONCE
     Route: 030
     Dates: start: 20161217, end: 20161217

REACTIONS (5)
  - Injection site warmth [Not Recovered/Not Resolved]
  - Vomiting [Recovered/Resolved]
  - Injection site pain [Not Recovered/Not Resolved]
  - Injury associated with device [Not Recovered/Not Resolved]
  - Drug ineffective [Recovered/Resolved]

NARRATIVE: CASE EVENT DATE: 20161217
